FAERS Safety Report 23867092 (Version 2)
Quarter: 2024Q3

REPORT INFORMATION
  Report Type: Spontaneous
  Country: BR (occurrence: BR)
  Receive Date: 20240517
  Receipt Date: 20240805
  Transmission Date: 20241016
  Serious: Yes (Other)
  Sender: BAYER
  Company Number: BR-BAYER-2024A071467

PATIENT
  Age: 23 Year
  Sex: Female

DRUGS (1)
  1. KYLEENA [Suspect]
     Active Substance: LEVONORGESTREL
     Indication: Contraception
     Dosage: 17.5?G/DAY
     Route: 015
     Dates: start: 201911

REACTIONS (8)
  - Intra-abdominal fluid collection [None]
  - Gastrointestinal tract irritation [None]
  - Product communication issue [None]
  - Abdominal pain lower [None]
  - Back pain [None]
  - Dysuria [None]
  - Diarrhoea [None]
  - Adverse drug reaction [None]
